FAERS Safety Report 9191489 (Version 1)
Quarter: 2013Q1

REPORT INFORMATION
  Report Type: Spontaneous
  Country: US (occurrence: US)
  Receive Date: 20130326
  Receipt Date: 20130326
  Transmission Date: 20140127
  Serious: Yes (Other)
  Sender: FDA-Public Use
  Company Number: CHPA2013US004955

PATIENT
  Age: 66 Year
  Sex: Female

DRUGS (4)
  1. PRIVATE LABEL [Suspect]
     Indication: SMOKING CESSATION THERAPY
     Dosage: 14 MG, QD
     Route: 062
     Dates: start: 2012
  2. PRIVATE LABEL [Suspect]
     Dosage: 21 MG, UNK
     Route: 062
  3. PRIVATE LABEL [Suspect]
     Dosage: 14 MG, UNK
     Route: 062
  4. UNSPECIFIED [Suspect]
     Indication: GLAUCOMA
     Dosage: UNK, UNK

REACTIONS (10)
  - Glaucoma [Not Recovered/Not Resolved]
  - Stomatitis [Recovered/Resolved]
  - Acne [Recovered/Resolved]
  - Diplopia [Recovered/Resolved]
  - Drug hypersensitivity [Not Recovered/Not Resolved]
  - Application site pruritus [Recovered/Resolved]
  - Application site urticaria [Recovered/Resolved]
  - Dizziness [Recovered/Resolved]
  - Application site erythema [Recovered/Resolved]
  - Application site rash [Recovered/Resolved]
